FAERS Safety Report 16794288 (Version 1)
Quarter: 2019Q3

REPORT INFORMATION
  Report Type: Spontaneous
  Country: US (occurrence: US)
  Receive Date: 20190719
  Receipt Date: 20190719
  Transmission Date: 20191005
  Serious: Yes (Hospitalization)
  Sender: FDA-Public Use
  Company Number: None

PATIENT
  Age: 80 Year
  Sex: Male
  Weight: 58.2 kg

DRUGS (1)
  1. ASPIRIN. [Suspect]
     Active Substance: ASPIRIN
     Indication: CORONARY ARTERY DISEASE
     Dosage: ?          OTHER FREQUENCY:UD;?
     Route: 048
     Dates: start: 20190320, end: 20190611

REACTIONS (5)
  - Dyspnoea [None]
  - Asthenia [None]
  - Gastrointestinal haemorrhage [None]
  - Pulmonary congestion [None]
  - Abdominal distension [None]

NARRATIVE: CASE EVENT DATE: 20190611
